FAERS Safety Report 6307740-8 (Version None)
Quarter: 2009Q3

REPORT INFORMATION
  Report Type: 
  Country: None (occurrence: None)
  Receive Date: 20090812
  Receipt Date: 20090812
  Transmission Date: 20100115
  Serious: No
  Sender: FDA-Public Use
  Company Number: None

PATIENT
  Sex: Female
  Weight: 63.5036 kg

DRUGS (2)
  1. SERTRALINE HCL [Suspect]
     Indication: ANXIETY
     Dates: start: 20090609, end: 20090701
  2. SERTRALINE HCL [Suspect]
     Indication: DEPRESSION
     Dates: start: 20090609, end: 20090701

REACTIONS (5)
  - ABDOMINAL DISCOMFORT [None]
  - DRUG INTOLERANCE [None]
  - HEADACHE [None]
  - PRODUCT SUBSTITUTION ISSUE [None]
  - RASH [None]
